FAERS Safety Report 13682053 (Version 1)
Quarter: 2017Q2

REPORT INFORMATION
  Report Type: Spontaneous
  Country: US (occurrence: US)
  Receive Date: 20170623
  Receipt Date: 20170623
  Transmission Date: 20170830
  Serious: No
  Sender: FDA-Public Use
  Company Number: US-BAYER-2017-121474

PATIENT
  Age: 81 Year
  Sex: Female
  Weight: 69.98 kg

DRUGS (5)
  1. CLARITIN LIQUI-GELS [Suspect]
     Active Substance: LORATADINE
     Indication: URTICARIA
  2. CLARITIN LIQUI-GELS [Suspect]
     Active Substance: LORATADINE
     Indication: ASTHMA
  3. CLARITIN LIQUI-GELS [Suspect]
     Active Substance: LORATADINE
     Indication: THERAPEUTIC SKIN CARE TOPICAL
     Dosage: 1 DF, QD
     Route: 048
  4. CLARITIN LIQUI-GELS [Suspect]
     Active Substance: LORATADINE
     Indication: RESPIRATORY DISORDER
  5. CLARITIN LIQUI-GELS [Suspect]
     Active Substance: LORATADINE
     Indication: NASAL DISORDER

REACTIONS (4)
  - Foreign body [Recovered/Resolved]
  - Urticaria [Recovering/Resolving]
  - Off label use [None]
  - Product use in unapproved indication [Unknown]

NARRATIVE: CASE EVENT DATE: 201706
